FAERS Safety Report 14975018 (Version 1)
Quarter: 2018Q2

REPORT INFORMATION
  Report Type: Spontaneous
  Country: US (occurrence: US)
  Receive Date: 20180515
  Receipt Date: 20180515
  Transmission Date: 20180711
  Serious: Yes (Other)
  Sender: FDA-Public Use
  Company Number: None

PATIENT
  Age: 67 Year
  Sex: Female
  Weight: 161.68 kg

DRUGS (22)
  1. ACYCLOVIR. [Concomitant]
     Active Substance: ACYCLOVIR
  2. ASACOL [Concomitant]
     Active Substance: MESALAMINE
  3. BIOTIN [Concomitant]
     Active Substance: BIOTIN
  4. CINNAMON. [Concomitant]
     Active Substance: CINNAMON
  5. MAGNESIUM [Concomitant]
     Active Substance: MAGNESIUM
  6. REVLIMID [Concomitant]
     Active Substance: LENALIDOMIDE
  7. LEVOTHYROXINE. [Concomitant]
     Active Substance: LEVOTHYROXINE
  8. MINOXIDIL. [Concomitant]
     Active Substance: MINOXIDIL
  9. OMEPRAZOLE. [Concomitant]
     Active Substance: OMEPRAZOLE
  10. TORSEMIDE. [Concomitant]
     Active Substance: TORSEMIDE
  11. NINLARO [Suspect]
     Active Substance: IXAZOMIB CITRATE
     Indication: PLASMA CELL MYELOMA
     Route: 048
     Dates: start: 20171215
  12. AZELASTINE. [Concomitant]
     Active Substance: AZELASTINE HYDROCHLORIDE
  13. GLIMEPIRIDE. [Concomitant]
     Active Substance: GLIMEPIRIDE
  14. TYLENOL PM [Concomitant]
     Active Substance: ACETAMINOPHEN\DIPHENHYDRAMINE
  15. ALBUTEROL. [Concomitant]
     Active Substance: ALBUTEROL
  16. GRANISETRON [Concomitant]
     Active Substance: GRANISETRON
  17. LOMOTIL [Concomitant]
     Active Substance: ATROPINE SULFATE\DIPHENOXYLATE HYDROCHLORIDE
  18. HYDROCORTISONE. [Concomitant]
     Active Substance: HYDROCORTISONE
  19. NYSTATIN. [Concomitant]
     Active Substance: NYSTATIN
  20. WELCHOL [Concomitant]
     Active Substance: COLESEVELAM HYDROCHLORIDE
  21. DEXAMETHASONE. [Concomitant]
     Active Substance: DEXAMETHASONE
  22. TRADJENTA [Concomitant]
     Active Substance: LINAGLIPTIN

REACTIONS (1)
  - Hypoaesthesia [None]
